FAERS Safety Report 8887082 (Version 1)
Quarter: 2012Q4

REPORT INFORMATION
  Report Type: Report from Study
  Country: None (occurrence: None)
  Receive Date: 20121105
  Receipt Date: 20121105
  Transmission Date: 20130627
  Serious: Yes (Death)
  Sender: FDA-Public Use
  Company Number: ME-ROCHE-1150049

PATIENT
  Age: 31 Year
  Sex: Female
  Weight: 54 kg

DRUGS (12)
  1. METHOXY POLYETHYLENE GLYCOL-EPOETIN BETA [Suspect]
     Indication: RENAL FAILURE CHRONIC
     Route: 058
     Dates: start: 20120405
  2. MONOPRIL [Concomitant]
     Indication: HYPERTENSION
     Route: 048
     Dates: start: 2000
  3. VASOFLEX [Concomitant]
     Indication: HYPERTENSION
     Route: 048
     Dates: start: 2000
  4. CONCOR [Concomitant]
     Indication: HYPERTENSION
     Dosage: DAILY DOSE:1X1/2
     Route: 048
     Dates: start: 2000
  5. LORISTA [Concomitant]
     Indication: HYPERTENSION
     Route: 048
     Dates: start: 2000
  6. ALPHAPRESS [Concomitant]
     Indication: HYPERTENSION
     Route: 048
  7. FOLAN [Concomitant]
     Indication: ANAEMIA
     Route: 048
  8. LAMALINE [Concomitant]
     Indication: EPILEPSY
     Route: 048
  9. INSULATARD [Concomitant]
     Route: 058
     Dates: start: 1983
  10. ACTRAPID [Concomitant]
     Route: 058
     Dates: start: 1983
  11. CACO3 [Concomitant]
     Route: 048
  12. ALPHA D3 [Concomitant]
     Route: 048

REACTIONS (1)
  - Haemorrhage intracranial [Fatal]
